FAERS Safety Report 8977124 (Version 2)
Quarter: 2012Q4

REPORT INFORMATION
  Report Type: 
  Country: ES (occurrence: ES)
  Receive Date: 20121219
  Receipt Date: 20121228
  Transmission Date: 20130627
  Serious: Yes (Hospitalization)
  Sender: FDA-Public Use
  Company Number: PHHY2012ES114212

PATIENT
  Sex: Male

DRUGS (2)
  1. ZOMETA [Suspect]
     Indication: PROSTATE CANCER
     Dates: start: 2011
  2. ESTRACYT [Suspect]

REACTIONS (2)
  - Osteonecrosis of jaw [Unknown]
  - Abscess [Unknown]
